FAERS Safety Report 6254180-6 (Version None)
Quarter: 2009Q3

REPORT INFORMATION
  Report Type: 
  Country: None (occurrence: None)
  Receive Date: 20090702
  Receipt Date: 20090623
  Transmission Date: 20100115
  Serious: Yes (Other)
  Sender: FDA-Public Use
  Company Number: US-WYE-H09866909

PATIENT
  Sex: Female
  Weight: 55.84 kg

DRUGS (3)
  1. PRISTIQ [Suspect]
     Indication: DEPRESSION
     Route: 048
     Dates: start: 20090605, end: 20090621
  2. MIDRIN [Concomitant]
     Indication: HEADACHE
     Dosage: UNKNOWN
  3. PROTONIX [Concomitant]
     Indication: GASTRIC DISORDER
     Dosage: UNKNOWN

REACTIONS (13)
  - ABDOMINAL DISCOMFORT [None]
  - BRUXISM [None]
  - CONSTIPATION [None]
  - DIZZINESS [None]
  - FALL [None]
  - FEELING ABNORMAL [None]
  - INTENTIONAL DRUG MISUSE [None]
  - LETHARGY [None]
  - LOSS OF CONSCIOUSNESS [None]
  - MALAISE [None]
  - NAUSEA [None]
  - PRESYNCOPE [None]
  - SYNCOPE [None]
